FAERS Safety Report 13067999 (Version 1)
Quarter: 2016Q4

REPORT INFORMATION
  Report Type: Report from Study
  Country: AR (occurrence: AR)
  Receive Date: 20161228
  Receipt Date: 20161228
  Transmission Date: 20170207
  Serious: Yes (Hospitalization)
  Sender: FDA-Public Use
  Company Number: AR-ROCHE-1870231

PATIENT

DRUGS (6)
  1. HYDROXYCHLOROQUINE PHOSPHATE [Suspect]
     Active Substance: HYDROXYCHLOROQUINE DIPHOSPHATE
     Indication: RHEUMATOID ARTHRITIS
     Route: 065
  2. MYCOPHENOLATE MOFETIL. [Suspect]
     Active Substance: MYCOPHENOLATE MOFETIL
     Indication: RHEUMATOID ARTHRITIS
     Route: 065
  3. AZATHIOPRINE. [Suspect]
     Active Substance: AZATHIOPRINE
     Indication: RHEUMATOID ARTHRITIS
     Route: 065
  4. LEFLUNOMIDE. [Suspect]
     Active Substance: LEFLUNOMIDE
     Indication: RHEUMATOID ARTHRITIS
     Route: 065
  5. METHOTREXATE. [Suspect]
     Active Substance: METHOTREXATE
     Indication: RHEUMATOID ARTHRITIS
     Route: 065
  6. SULFASALAZINE. [Suspect]
     Active Substance: SULFASALAZINE
     Indication: RHEUMATOID ARTHRITIS
     Route: 065

REACTIONS (16)
  - Cardiac disorder [Unknown]
  - Blood disorder [Unknown]
  - Herpes zoster [Unknown]
  - Pneumonia [Unknown]
  - Pneumonitis [Unknown]
  - Dyspepsia [Unknown]
  - Off label use [Unknown]
  - Transaminases increased [Unknown]
  - Renal failure [Unknown]
  - Neoplasm [Unknown]
  - Alopecia [Unknown]
  - Oral disorder [Unknown]
  - Urinary tract infection [Unknown]
  - Fatigue [Unknown]
  - Nodule [Unknown]
  - Pruritus [Unknown]
